FAERS Safety Report 5596997-7 (Version None)
Quarter: 2008Q1

REPORT INFORMATION
  Report Type: 
  Country: None (occurrence: None)
  Receive Date: 20080121
  Receipt Date: 20080109
  Transmission Date: 20080703
  Serious: Yes (Other)
  Sender: FDA-Public Use
  Company Number: DE-ELI_LILLY_AND_COMPANY-DE200801001795

PATIENT
  Sex: Female
  Weight: 78 kg

DRUGS (8)
  1. ZYPREXA [Suspect]
     Indication: DEPRESSION
     Dosage: 10 MG, DAILY (1/D)
     Route: 048
     Dates: start: 20070907, end: 20071018
  2. ZYPREXA [Suspect]
     Dosage: 10 MG, DAILY (1/D)
     Route: 048
     Dates: start: 20071025, end: 20071105
  3. BISOPROLOL FUMARATE [Concomitant]
  4. EBRANTIL [Concomitant]
  5. AMLODIPINE [Concomitant]
  6. APROVEL [Concomitant]
  7. DISALUNIL [Concomitant]
  8. TREVILOR [Concomitant]
     Dosage: 225 MG, DAILY (1/D)
     Route: 048
     Dates: start: 20070829, end: 20071001

REACTIONS (1)
  - HAEMOLYTIC ANAEMIA [None]
